FAERS Safety Report 11649988 (Version 1)
Quarter: 2015Q4

REPORT INFORMATION
  Report Type: Report from Study
  Country: FR (occurrence: FR)
  Receive Date: 20151021
  Receipt Date: 20151021
  Transmission Date: 20160304
  Serious: Yes (Hospitalization, Other)
  Sender: FDA-Public Use
  Company Number: FR-BRISTOL-MYERS SQUIBB COMPANY-BMS-2015-069214

PATIENT
  Sex: Female

DRUGS (2)
  1. WARFARIN SODIUM. [Suspect]
     Active Substance: WARFARIN SODIUM
     Indication: ATRIAL FIBRILLATION
     Route: 065
  2. WARFARIN SODIUM. [Suspect]
     Active Substance: WARFARIN SODIUM
     Indication: THROMBOSIS PROPHYLAXIS

REACTIONS (4)
  - Atrial fibrillation [Unknown]
  - Dyspnoea [Unknown]
  - Cerebrovascular accident [Unknown]
  - Syncope [Unknown]
